FAERS Safety Report 15223726 (Version 1)
Quarter: 2018Q3

REPORT INFORMATION
  Report Type: Spontaneous
  Country: US (occurrence: US)
  Receive Date: 20180705
  Receipt Date: 20180705
  Transmission Date: 20181010
  Serious: Yes (Hospitalization)
  Sender: FDA-Public Use
  Company Number: None

PATIENT
  Age: 79 Year
  Sex: Male

DRUGS (9)
  1. POT CITRATE TAB [Concomitant]
  2. FERROCITE TAB [Concomitant]
  3. GEMFIBROZIL TAB [Concomitant]
  4. ALLOPURINOL TAB [Concomitant]
     Active Substance: ALLOPURINOL
  5. ESBRIET [Suspect]
     Active Substance: PIRFENIDONE
     Indication: IDIOPATHIC PULMONARY FIBROSIS
     Dosage: ?          OTHER FREQUENCY:3?3 TIMES DAILY;?
     Route: 048
     Dates: start: 20151006
  6. TAMSULOSIN CAP [Concomitant]
     Active Substance: TAMSULOSIN
  7. NITROFURANTN CAP [Concomitant]
  8. SMZ/TMP DS TAB [Concomitant]
  9. METHOTREXATE. [Concomitant]
     Active Substance: METHOTREXATE

REACTIONS (4)
  - Drug dose omission [None]
  - Pneumothorax [None]
  - Traumatic lung injury [None]
  - Fall [None]

NARRATIVE: CASE EVENT DATE: 201806
